FAERS Safety Report 5709048-8 (Version None)
Quarter: 2008Q2

REPORT INFORMATION
  Report Type: 
  Country: None (occurrence: None)
  Receive Date: 20080416
  Receipt Date: 20080416
  Transmission Date: 20081010
  Serious: Yes (Disabling)
  Sender: FDA-Public Use
  Company Number: None

PATIENT
  Age: 8 Year
  Sex: Male
  Weight: 20.4119 kg

DRUGS (4)
  1. CONCERTA [Suspect]
     Indication: ATTENTION DEFICIT/HYPERACTIVITY DISORDER
     Dosage: 54 MG ONCE DAILY PO
     Route: 048
     Dates: start: 20061116, end: 20080412
  2. CONCERTA [Suspect]
     Indication: BIPOLAR DISORDER
     Dosage: 54 MG ONCE DAILY PO
     Route: 048
     Dates: start: 20061116, end: 20080412
  3. RISPERDAL [Suspect]
     Indication: ATTENTION DEFICIT/HYPERACTIVITY DISORDER
     Dosage: 1/2 MG ONCE DAILY
     Dates: start: 20080411, end: 20080411
  4. RISPERDAL [Suspect]
     Indication: BIPOLAR DISORDER
     Dosage: 1/2 MG ONCE DAILY
     Dates: start: 20080411, end: 20080411

REACTIONS (5)
  - FACIAL SPASM [None]
  - PAIN IN JAW [None]
  - SOMNOLENCE [None]
  - TIC [None]
  - TRISMUS [None]
